FAERS Safety Report 4719368-1 (Version None)
Quarter: 2005Q3

REPORT INFORMATION
  Report Type: 
  Country: None (occurrence: None)
  Receive Date: 20050721
  Receipt Date: 20050712
  Transmission Date: 20060218
  Serious: Yes (Death, Hospitalization)
  Sender: FDA-Public Use
  Company Number: US-JNJFOC-20050702577

PATIENT
  Age: 81 Year
  Sex: Female

DRUGS (4)
  1. REMICADE [Suspect]
     Route: 042
  2. REMICADE [Suspect]
     Indication: RHEUMATOID ARTHRITIS
     Route: 042
  3. IMURAN [Concomitant]
  4. FOSAMAX [Concomitant]

REACTIONS (9)
  - CARDIAC FAILURE [None]
  - CEREBROVASCULAR ACCIDENT [None]
  - DIARRHOEA [None]
  - MYOCARDIAL INFARCTION [None]
  - NAUSEA [None]
  - PYREXIA [None]
  - RASH [None]
  - RENAL FAILURE [None]
  - SEPSIS [None]
